FAERS Safety Report 5508368-X (Version None)
Quarter: 2007Q4

REPORT INFORMATION
  Report Type: 
  Country: None (occurrence: None)
  Receive Date: 20071106
  Receipt Date: 20071105
  Transmission Date: 20080405
  Serious: Yes (Hospitalization)
  Sender: FDA-Public Use
  Company Number: FR-MERCK-0711FRA00011

PATIENT
  Age: 74 Year
  Sex: Female

DRUGS (7)
  1. NOROXIN [Suspect]
     Route: 048
     Dates: start: 20071005, end: 20071010
  2. ACETAMINOPHEN [Suspect]
     Route: 048
     Dates: end: 20071011
  3. OMEPRAZOLE [Suspect]
     Route: 048
     Dates: end: 20071011
  4. OMEPRAZOLE [Suspect]
     Route: 048
     Dates: start: 20071011
  5. AMOXICILLIN [Suspect]
     Route: 048
     Dates: start: 20070901, end: 20070910
  6. FLUOXETINE HYDROCHLORIDE [Suspect]
     Route: 048
     Dates: start: 20070907, end: 20071011
  7. ACETAMINOPHEN AND PROPOXYPHENE HYDROCHLORIDE [Suspect]
     Route: 048
     Dates: start: 20070903, end: 20070918

REACTIONS (2)
  - CHOLESTASIS [None]
  - CYTOLYTIC HEPATITIS [None]
